FAERS Safety Report 20050562 (Version 4)
Quarter: 2022Q1

REPORT INFORMATION
  Report Type: Spontaneous
  Country: JP (occurrence: JP)
  Receive Date: 20211109
  Receipt Date: 20220208
  Transmission Date: 20220423
  Serious: Yes (Life-Threatening, Hospitalization, Disabling, Other)
  Sender: FDA-Public Use
  Company Number: JP-CELLTRION INC.-2021JP014931

PATIENT

DRUGS (3)
  1. TRASTUZUMAB [Suspect]
     Active Substance: TRASTUZUMAB
     Indication: Breast cancer
     Dosage: 240 MILLIGRAM (300 MG AT THE FIRST ADMINISTRATION, 10 TIMES IN TOTAL)
     Route: 041
     Dates: start: 20200414, end: 20201030
  2. DOCETAXEL [Suspect]
     Active Substance: DOCETAXEL
     Indication: Breast cancer
     Dosage: 80 MILLIGRAM (4 TIMES IN TOTAL)
     Route: 065
     Dates: start: 20200414, end: 20200617
  3. PERJETA [Concomitant]
     Active Substance: PERTUZUMAB
     Indication: Breast cancer
     Dosage: 420 MILLIGRAM/DAY (840 MG AT THE FIRST ADMINISTRATION, 10 TIMES IN TOTAL)
     Dates: start: 20200414, end: 20201030

REACTIONS (5)
  - Cardiomyopathy [Recovering/Resolving]
  - Cardiac ventricular thrombosis [Recovering/Resolving]
  - Cardiac failure [Recovering/Resolving]
  - Escherichia urinary tract infection [Recovering/Resolving]
  - Pulmonary toxicity [Unknown]

NARRATIVE: CASE EVENT DATE: 20200617
